FAERS Safety Report 17115751 (Version 2)
Quarter: 2020Q1

REPORT INFORMATION
  Report Type: Report from Study
  Country: DE (occurrence: DE)
  Receive Date: 20191205
  Receipt Date: 20200114
  Transmission Date: 20200409
  Serious: Yes (Other)
  Sender: FDA-Public Use
  Company Number: PHHY2015DE042207

PATIENT
  Age: 33 Year
  Sex: Female

DRUGS (2)
  1. GILENYA [Suspect]
     Active Substance: FINGOLIMOD HYDROCHLORIDE
     Dosage: UNK
     Route: 048
     Dates: start: 20141110
  2. GILENYA [Suspect]
     Active Substance: FINGOLIMOD HYDROCHLORIDE
     Indication: MULTIPLE SCLEROSIS
     Dosage: UNK, QD
     Route: 048
     Dates: start: 20110329, end: 20110829

REACTIONS (19)
  - Chest discomfort [Unknown]
  - Vitamin D deficiency [Unknown]
  - Laryngitis [Recovered/Resolved]
  - Gamma-glutamyltransferase increased [Unknown]
  - Back pain [Unknown]
  - Dizziness [Unknown]
  - Nasopharyngitis [Recovered/Resolved]
  - Lymphocyte count decreased [Not Recovered/Not Resolved]
  - Feeling hot [Unknown]
  - Sinusitis [Recovered/Resolved]
  - Renal cyst ruptured [Not Recovered/Not Resolved]
  - White blood cell count decreased [Unknown]
  - Alanine aminotransferase increased [Unknown]
  - Influenza [Recovered/Resolved]
  - Sensory disturbance [Recovered/Resolved]
  - Vitamin D deficiency [Recovered/Resolved]
  - Nasopharyngitis [Recovered/Resolved]
  - Breath odour [Unknown]
  - Sinusitis [Unknown]

NARRATIVE: CASE EVENT DATE: 20150215
